FAERS Safety Report 24188231 (Version 1)
Quarter: 2024Q3

REPORT INFORMATION
  Report Type: Spontaneous
  Country: US (occurrence: US)
  Receive Date: 20240808
  Receipt Date: 20240808
  Transmission Date: 20241017
  Serious: No
  Sender: OTSUKA
  Company Number: US-OTSUKA-2023_023224

PATIENT

DRUGS (1)
  1. ABILIFY [Suspect]
     Active Substance: ARIPIPRAZOLE
     Indication: Product used for unknown indication
     Dosage: UNK, QD (ONCE IN THE MORNING)
     Route: 065

REACTIONS (4)
  - Fungal test positive [Unknown]
  - Irritable bowel syndrome [Unknown]
  - Abnormal faeces [Unknown]
  - Dyspepsia [Unknown]
